FAERS Safety Report 22873592 (Version 3)
Quarter: 2023Q4

REPORT INFORMATION
  Report Type: Spontaneous
  Country: US (occurrence: US)
  Receive Date: 20230828
  Receipt Date: 20231124
  Transmission Date: 20240110
  Serious: Yes (Other)
  Sender: FDA-Public Use
  Company Number: US-TEVA-2023-US-2921608

PATIENT
  Age: 66 Year
  Sex: Female

DRUGS (4)
  1. QVAR REDIHALER [Suspect]
     Active Substance: BECLOMETHASONE DIPROPIONATE
     Indication: Asthma
     Dosage: 160 MICROGRAM DAILY; 80 MCG
     Route: 055
  2. QVAR REDIHALER [Suspect]
     Active Substance: BECLOMETHASONE DIPROPIONATE
     Route: 055
  3. QVAR REDIHALER [Suspect]
     Active Substance: BECLOMETHASONE DIPROPIONATE
     Dosage: 80 MCG
     Route: 055
  4. QVAR REDIHALER [Suspect]
     Active Substance: BECLOMETHASONE DIPROPIONATE
     Dosage: 200 MICROGRAM DAILY;
     Route: 055

REACTIONS (21)
  - Asthma [Unknown]
  - Dyspnoea [Unknown]
  - Respiratory tract inflammation [Unknown]
  - Discomfort [Unknown]
  - Cough [Unknown]
  - Wheezing [Unknown]
  - Peak expiratory flow rate decreased [Unknown]
  - COVID-19 [Unknown]
  - Fatigue [Unknown]
  - Productive cough [Unknown]
  - Anxiety [Unknown]
  - Emotional distress [Unknown]
  - Fear [Unknown]
  - Sleep deficit [Unknown]
  - Headache [Unknown]
  - Candida infection [Unknown]
  - Stress urinary incontinence [Unknown]
  - Herpes zoster [Unknown]
  - Pain [Unknown]
  - Device delivery system issue [Unknown]
  - Device malfunction [Unknown]

NARRATIVE: CASE EVENT DATE: 20221201
